FAERS Safety Report 12257450 (Version 1)
Quarter: 2016Q2

REPORT INFORMATION
  Report Type: Report from Study
  Country: US (occurrence: US)
  Receive Date: 20160412
  Receipt Date: 20160412
  Transmission Date: 20160815
  Serious: Yes (Hospitalization)
  Sender: FDA-Public Use
  Company Number: US-ABBVIE-16K-163-1595463-00

PATIENT
  Age: 60 Year
  Sex: Female

DRUGS (2)
  1. IMURAN [Concomitant]
     Active Substance: AZATHIOPRINE
     Indication: CROHN^S DISEASE
  2. HUMIRA [Suspect]
     Active Substance: ADALIMUMAB
     Indication: CROHN^S DISEASE
     Route: 058
     Dates: start: 20160108, end: 20160324

REACTIONS (7)
  - Blood potassium decreased [Recovering/Resolving]
  - Drug effect incomplete [Not Recovered/Not Resolved]
  - Crohn^s disease [Recovering/Resolving]
  - Gastrointestinal wall thickening [Unknown]
  - Colitis [Unknown]
  - Dehydration [Recovered/Resolved]
  - Abdominal adhesions [Unknown]

NARRATIVE: CASE EVENT DATE: 2016
